FAERS Safety Report 14751839 (Version 3)
Quarter: 2018Q2

REPORT INFORMATION
  Report Type: Report from Study
  Country: US (occurrence: US)
  Receive Date: 20180412
  Receipt Date: 20180605
  Transmission Date: 20180711
  Serious: Yes (Hospitalization, Other)
  Sender: FDA-Public Use
  Company Number: US-GILEAD-2018-0331986

PATIENT
  Age: 52 Year
  Sex: Male
  Weight: 116.55 kg

DRUGS (4)
  1. AMBRISENTAN [Suspect]
     Active Substance: AMBRISENTAN
     Indication: PULMONARY ARTERIAL HYPERTENSION
     Dosage: 10 MG, QD
     Route: 065
     Dates: start: 20161117, end: 201803
  2. ADCIRCA [Concomitant]
     Active Substance: TADALAFIL
  3. XARELTO [Concomitant]
     Active Substance: RIVAROXABAN
  4. NIFEDIPINE. [Concomitant]
     Active Substance: NIFEDIPINE

REACTIONS (5)
  - Fluid retention [Unknown]
  - Weight decreased [Unknown]
  - Dyspnoea [Recovered/Resolved]
  - Cardiac failure congestive [Unknown]
  - Intentional product use issue [Unknown]

NARRATIVE: CASE EVENT DATE: 20180218
